FAERS Safety Report 5210440-9 (Version None)
Quarter: 2007Q1

REPORT INFORMATION
  Report Type: 
  Country: None (occurrence: None)
  Receive Date: 20070117
  Receipt Date: 20070110
  Transmission Date: 20070707
  Serious: Yes (Other)
  Sender: FDA-Public Use
  Company Number: US-JNJFOC-20070102699

PATIENT
  Sex: Male
  Weight: 72.58 kg

DRUGS (9)
  1. RISPERDAL [Suspect]
     Route: 048
  2. RISPERDAL [Suspect]
     Indication: BIPOLAR DISORDER
     Route: 048
  3. SEROZONE [Concomitant]
     Indication: AFFECTIVE DISORDER
     Route: 048
  4. PROVIGIL [Concomitant]
     Indication: NARCOLEPSY
     Route: 048
  5. NEURONTIN [Concomitant]
     Indication: AFFECTIVE DISORDER
     Route: 048
  6. TRICOR [Concomitant]
     Indication: BLOOD CHOLESTEROL INCREASED
     Route: 048
  7. VYTORIN [Concomitant]
     Indication: BLOOD CHOLESTEROL INCREASED
     Route: 048
  8. BETOPTIC [Concomitant]
     Indication: GLAUCOMA
  9. BENECAR [Concomitant]
     Indication: BLOOD PRESSURE
     Route: 048

REACTIONS (3)
  - CEREBRAL HAEMORRHAGE [None]
  - HYPERTENSION [None]
  - RHINITIS ALLERGIC [None]
